FAERS Safety Report 25331906 (Version 1)
Quarter: 2025Q2

REPORT INFORMATION
  Report Type: Report from Study
  Country: US (occurrence: US)
  Receive Date: 20250519
  Receipt Date: 20250519
  Transmission Date: 20250716
  Serious: Yes (Hospitalization)
  Sender: ALEXION PHARMACEUTICALS
  Company Number: US-ASTRAZENECA-202505USA013478US

PATIENT
  Age: 31 Year

DRUGS (1)
  1. STRENSIQ [Suspect]
     Active Substance: ASFOTASE ALFA
     Indication: Enzyme level abnormal
     Dosage: 80 MILLIGRAM, TIW
     Route: 065

REACTIONS (2)
  - Impaired healing [Recovered/Resolved]
  - Neoplasm [Recovered/Resolved]
